FAERS Safety Report 23580551 (Version 2)
Quarter: 2024Q1

REPORT INFORMATION
  Report Type: Report from Study
  Country: CN (occurrence: CN)
  Receive Date: 20240229
  Receipt Date: 20240301
  Transmission Date: 20240410
  Serious: Yes (Life-Threatening, Other)
  Sender: FDA-Public Use
  Company Number: CN-TAKEDA-2024TUS014788

PATIENT

DRUGS (5)
  1. PANTOPRAZOLE [Suspect]
     Active Substance: PANTOPRAZOLE
     Indication: Peptic ulcer
     Dosage: 80 MG
     Route: 042
  2. PANTOPRAZOLE [Suspect]
     Active Substance: PANTOPRAZOLE
     Indication: Upper gastrointestinal haemorrhage
     Dosage: CONTINUOUSLY PUMPED AT A RATE OF 8 MG/H FOR 72 H
  3. PANTOPRAZOLE [Suspect]
     Active Substance: PANTOPRAZOLE
     Dosage: 40 MG, 2X/DAY (40 MG, ONCE EVERY 12 H.)
     Route: 041
  4. OCTREOTIDE [Concomitant]
     Active Substance: OCTREOTIDE\OCTREOTIDE ACETATE
     Indication: Peptic ulcer
     Dosage: 0.05 MG/H CONTINUOUSLY FOR 72 H
     Route: 042
  5. OCTREOTIDE [Concomitant]
     Active Substance: OCTREOTIDE\OCTREOTIDE ACETATE
     Indication: Upper gastrointestinal haemorrhage

REACTIONS (1)
  - Drug ineffective [Unknown]
